FAERS Safety Report 9508884 (Version 2)
Quarter: 2013Q3

REPORT INFORMATION
  Report Type: Spontaneous
  Country: US (occurrence: US)
  Receive Date: 20130909
  Receipt Date: 20130909
  Transmission Date: 20140515
  Serious: No
  Sender: FDA-Public Use
  Company Number: US-BRISTOL-MYERS SQUIBB COMPANY-19025261

PATIENT
  Age: 4 Decade
  Sex: Male

DRUGS (1)
  1. ABILIFY INJECTION [Suspect]
     Indication: DELUSION
     Dosage: ABILIFY MAINTENA
     Route: 065
     Dates: start: 2013

REACTIONS (1)
  - Akathisia [Unknown]
